FAERS Safety Report 8609994-1 (Version None)
Quarter: 2012Q3

REPORT INFORMATION
  Report Type: 
  Country: None (occurrence: None)
  Receive Date: 20120822
  Receipt Date: 20120718
  Transmission Date: 20120928
  Serious: Yes (Hospitalization)
  Sender: FDA-Public Use
  Company Number: JP-009507513-1208JPN005159

PATIENT

DRUGS (12)
  1. SULPIRIDE [Concomitant]
     Dosage: 100 MG ONCE
     Route: 048
  2. XYZAL [Concomitant]
     Indication: PROPHYLAXIS
     Dosage: 5 MG ONCE
     Route: 048
     Dates: start: 20120410
  3. REBETOL [Suspect]
     Dosage: 600 MG ONCE
     Route: 048
     Dates: start: 20120613, end: 20120619
  4. SELBEX [Concomitant]
     Indication: PROPHYLAXIS
     Dosage: 1.5 G ONCE
     Route: 048
     Dates: start: 20120410
  5. TELAVIC [Suspect]
     Dosage: 2250 MG, ONCE
     Route: 048
     Dates: start: 20120502, end: 20120522
  6. XYZAL [Concomitant]
     Dosage: 10 MG ONCE
     Route: 048
  7. REBETOL [Suspect]
     Route: 048
     Dates: start: 20120620
  8. TELAVIC [Suspect]
     Dosage: 1500 MG, ONCE
     Route: 048
     Dates: start: 20120413, end: 20120501
  9. REBETOL [Suspect]
     Indication: HEPATITIS C
     Dosage: 800 MG ONCE
     Route: 048
     Dates: start: 20120410, end: 20120612
  10. PEG-INTRON [Suspect]
     Indication: HEPATITIS C
     Dosage: 1.5MCG/KG/WEEK
     Route: 058
     Dates: start: 20120410
  11. TELAVIC [Suspect]
     Indication: HEPATITIS C
     Dosage: 2250 MG ONCE
     Route: 048
     Dates: start: 20120410, end: 20120412
  12. TELAVIC [Suspect]
     Dosage: 1500 MG, ONCE
     Route: 048
     Dates: start: 20120523, end: 20120619

REACTIONS (1)
  - ANAEMIA [None]
